FAERS Safety Report 10469758 (Version 1)
Quarter: 2014Q3

REPORT INFORMATION
  Report Type: Spontaneous
  Country: US (occurrence: US)
  Receive Date: 20140923
  Receipt Date: 20140923
  Transmission Date: 20150326
  Serious: Yes (Other)
  Sender: FDA-Public Use
  Company Number: US-SA-2014SA130881

PATIENT
  Age: 50 Year
  Sex: Female

DRUGS (4)
  1. FLUDROCORTISONE [Concomitant]
     Active Substance: FLUDROCORTISONE
  2. DESMOPRESSIN ACETATE. [Suspect]
     Active Substance: DESMOPRESSIN ACETATE
     Indication: DIABETES INSIPIDUS
     Route: 048
     Dates: start: 2014, end: 2014
  3. LEVOTHYROXINE [Concomitant]
     Active Substance: LEVOTHYROXINE
  4. ALBUTEROL. [Concomitant]
     Active Substance: ALBUTEROL
     Dosage: INHALER

REACTIONS (4)
  - Pruritus [Unknown]
  - Dyspnoea [Unknown]
  - Angioedema [Unknown]
  - Swelling face [Unknown]
